FAERS Safety Report 22096308 (Version 2)
Quarter: 2023Q2

REPORT INFORMATION
  Report Type: Spontaneous
  Country: FR (occurrence: FR)
  Receive Date: 20230315
  Receipt Date: 20230427
  Transmission Date: 20230722
  Serious: Yes (Hospitalization)
  Sender: FDA-Public Use
  Company Number: FR-NOVOPROD-1035637

PATIENT
  Age: 44 Year
  Sex: Female
  Weight: 129.8 kg

DRUGS (10)
  1. WEGOVY [Suspect]
     Active Substance: SEMAGLUTIDE
     Dosage: 0.5 MG, QW
     Route: 058
     Dates: start: 20230311
  2. WEGOVY [Suspect]
     Active Substance: SEMAGLUTIDE
     Indication: Obesity
     Dosage: 0.25 MG
     Route: 058
     Dates: start: 20230222, end: 20230302
  3. TRIMEPRAZINE [Concomitant]
     Active Substance: TRIMEPRAZINE
     Indication: Insomnia
     Dosage: 20 MG, QD
     Route: 048
     Dates: start: 20230302, end: 20230327
  4. VALIUM [Concomitant]
     Active Substance: DIAZEPAM
     Indication: Anxiety
     Dosage: 40 MG, QD (DRINKABLE DROP)
     Route: 048
     Dates: start: 20230222, end: 20230322
  5. LOXAPINE [Concomitant]
     Active Substance: LOXAPINE
     Indication: Antipsychotic therapy
     Dosage: 125 MG, QD (DRINKABLE DROP)
     Route: 048
     Dates: start: 20230222
  6. CLOZAPINE [Concomitant]
     Active Substance: CLOZAPINE
     Dosage: 5 DF, QD (2 TABLETS ON MORNING AND 3 TABLETS AT NIGHT)
     Route: 048
     Dates: start: 20230227
  7. CLOZAPINE [Concomitant]
     Active Substance: CLOZAPINE
     Indication: Antipsychotic therapy
     Dosage: 50 MG, QD
     Route: 048
     Dates: start: 20230222, end: 20230227
  8. PAROXETINE [Concomitant]
     Active Substance: PAROXETINE
     Indication: Antidepressant therapy
     Dosage: 40 MG, QD (2 TABLETS)
     Route: 048
     Dates: start: 20230222
  9. PANTOPRAZOLE [Concomitant]
     Active Substance: PANTOPRAZOLE
     Indication: Gastrooesophageal reflux disease
     Dosage: 20 MG, QD
     Route: 048
     Dates: start: 20230222
  10. DITROPAN [Concomitant]
     Active Substance: OXYBUTYNIN CHLORIDE
     Indication: Urinary incontinence
     Dosage: 15 MG, QD
     Route: 048
     Dates: start: 20230302

REACTIONS (2)
  - Psychotic disorder [Unknown]
  - Anxiety [Unknown]

NARRATIVE: CASE EVENT DATE: 20230222
